FAERS Safety Report 6717878-9 (Version None)
Quarter: 2010Q2

REPORT INFORMATION
  Report Type: 
  Country: None (occurrence: None)
  Receive Date: 20100510
  Receipt Date: 20100428
  Transmission Date: 20101027
  Serious: Yes (Hospitalization)
  Sender: FDA-Public Use
  Company Number: US-WYE-H14275910

PATIENT
  Sex: Female
  Weight: 58.1 kg

DRUGS (16)
  1. RELISTOR [Suspect]
     Indication: CONSTIPATION
     Dosage: 8 MG EVERY 1 TOT
     Route: 058
     Dates: start: 20091026, end: 20091026
  2. MIRALAX [Concomitant]
     Dosage: 1 PACK TWICE/DAY
     Route: 048
  3. SENOKOT [Concomitant]
     Route: 048
  4. DILAUDID [Concomitant]
     Dosage: 1 MG, EVERY 4 HOURS, PRN
     Route: 042
     Dates: end: 20091026
  5. DULCOLAX [Concomitant]
     Route: 054
  6. DEXAMETHASONE [Concomitant]
     Route: 042
  7. BENADRYL [Concomitant]
     Route: 042
  8. CARAFATE [Concomitant]
     Dosage: 1 G, BEFORE MEALS AND HS
     Route: 048
  9. NEURONTIN [Concomitant]
     Route: 048
  10. ZOFRAN [Concomitant]
     Dosage: 4 MG, EVERY 6 HOURS PRN
     Route: 002
  11. PROTONIX [Concomitant]
     Route: 048
  12. LEVOTHYROXINE SODIUM [Concomitant]
     Route: 048
  13. LOVENOX [Concomitant]
     Route: 058
  14. FENTANYL [Concomitant]
     Dosage: 100 MCG/HR, 3 PATCH, EVERY 48 HOURS
     Route: 062
  15. ROXICODONE [Concomitant]
     Dosage: 15 MG, EVERY 8 HOURS, PRN
     Route: 048
  16. COMPAZINE [Concomitant]
     Route: 048

REACTIONS (7)
  - ABDOMINAL PAIN [None]
  - CHILLS [None]
  - DRUG WITHDRAWAL SYNDROME [None]
  - HYPERHIDROSIS [None]
  - NAUSEA [None]
  - OXYGEN SATURATION DECREASED [None]
  - VOMITING [None]
